FAERS Safety Report 14519522 (Version 3)
Quarter: 2018Q2

REPORT INFORMATION
  Report Type: Spontaneous
  Country: US (occurrence: US)
  Receive Date: 20180212
  Receipt Date: 20180413
  Transmission Date: 20180711
  Serious: Yes (Hospitalization, Other)
  Sender: FDA-Public Use
  Company Number: US-PFIZER INC-2018051817

PATIENT
  Age: 6 Decade
  Sex: Male
  Weight: 68 kg

DRUGS (3)
  1. MARCAINE [Suspect]
     Active Substance: BUPIVACAINE HYDROCHLORIDE
     Dosage: UNK
     Route: 014
     Dates: start: 201801
  2. LIDOCAINE HCL [Suspect]
     Active Substance: LIDOCAINE HYDROCHLORIDE
     Dosage: UNK
     Route: 014
     Dates: start: 201801
  3. DEPO-MEDROL [Suspect]
     Active Substance: METHYLPREDNISOLONE ACETATE
     Indication: OSTEOARTHRITIS
     Dosage: UNK UNK, SINGLE [80MG/2ML BY INJECTION ONCE]
     Route: 014
     Dates: start: 20180111

REACTIONS (5)
  - Streptococcus test positive [Unknown]
  - Product use issue [Unknown]
  - Product quality issue [Unknown]
  - Arthritis infective [Not Recovered/Not Resolved]
  - Haemophilus test positive [Unknown]

NARRATIVE: CASE EVENT DATE: 20180125
